FAERS Safety Report 13782982 (Version 2)
Quarter: 2017Q4

REPORT INFORMATION
  Report Type: Spontaneous
  Country: US (occurrence: US)
  Receive Date: 20170724
  Receipt Date: 20171010
  Transmission Date: 20180320
  Serious: No
  Sender: FDA-Public Use
  Company Number: US-GLAXOSMITHKLINE-US2017GSK112423

PATIENT
  Sex: Female

DRUGS (2)
  1. INDOMETHACIN TABLET [Suspect]
     Active Substance: INDOMETHACIN
     Indication: MIGRAINE
     Dosage: UNK, U
  2. SUMATRIPTAN (SUMATRIPTAN SUCCINATE) SOLUTION FOR INJECTION IN PRE-FILL [Suspect]
     Active Substance: SUMATRIPTAN
     Indication: MIGRAINE
     Dosage: UNK, U
     Route: 042

REACTIONS (3)
  - Therapeutic response decreased [Unknown]
  - Migraine [Unknown]
  - Product quality issue [Unknown]
